FAERS Safety Report 5430651-7 (Version None)
Quarter: 2007Q3

REPORT INFORMATION
  Report Type: 
  Country: None (occurrence: None)
  Receive Date: 20070830
  Receipt Date: 20070808
  Transmission Date: 20080115
  Serious: Yes (Other)
  Sender: FDA-Public Use
  Company Number: PHBS2006ES00756

PATIENT
  Age: 55 Year
  Sex: Male

DRUGS (3)
  1. IMATINIB MESYLATE [Suspect]
     Indication: CHRONIC MYELOID LEUKAEMIA
     Dosage: 400 MG/DAY
     Route: 065
     Dates: start: 20021001
  2. IMATINIB MESYLATE [Suspect]
     Dosage: 300 MG/DAY
     Route: 065
  3. INTERFERON ALFA [Concomitant]
     Dosage: 3MILLION UNITS THREE TIMES PER WEEK
     Route: 065
     Dates: start: 20040101

REACTIONS (5)
  - ANAEMIA [None]
  - CHROMOSOME ANALYSIS ABNORMAL [None]
  - ERYTHROPOIESIS ABNORMAL [None]
  - MYELODYSPLASTIC SYNDROME [None]
  - NEUTROPENIA [None]
